FAERS Safety Report 5370810-5 (Version None)
Quarter: 2007Q2

REPORT INFORMATION
  Report Type: 
  Country: None (occurrence: None)
  Receive Date: 20070618
  Receipt Date: 20070319
  Transmission Date: 20071010
  Serious: Yes (Disabling)
  Sender: FDA-Public Use
  Company Number: PHEH2006US14976

PATIENT
  Age: 47 Year
  Sex: Male

DRUGS (2)
  1. GLEEVEC [Suspect]
     Indication: CHRONIC MYELOID LEUKAEMIA
     Dosage: 400 MG, QD, ORAL; 300 MG, QD, ORAL
     Route: 048
     Dates: start: 20061116, end: 20061128
  2. GLEEVEC [Suspect]
     Indication: CHRONIC MYELOID LEUKAEMIA
     Dosage: 400 MG, QD, ORAL; 300 MG, QD, ORAL
     Route: 048
     Dates: start: 20061128

REACTIONS (5)
  - ABASIA [None]
  - DYSPNOEA [None]
  - MYALGIA [None]
  - OEDEMA PERIPHERAL [None]
  - PAIN IN EXTREMITY [None]
